FAERS Safety Report 7406834-3 (Version None)
Quarter: 2011Q2

REPORT INFORMATION
  Report Type: 
  Country: None (occurrence: None)
  Receive Date: 20110404
  Receipt Date: 20110330
  Transmission Date: 20111010
  Serious: Yes (Other)
  Sender: FDA-Public Use
  Company Number: 2008-178051-NL

PATIENT
  Age: 24 Year
  Sex: Female
  Weight: 58.1 kg

DRUGS (13)
  1. NUVARING [Suspect]
     Indication: CONTRACEPTION
     Dosage: VAG
     Route: 067
     Dates: start: 20060401, end: 20080101
  2. BENADRYL [Concomitant]
  3. ACETAMINOPHEN [Concomitant]
  4. PROPOXYPHENE NAPSYLATE [Concomitant]
  5. HFA [Concomitant]
  6. LEVOTHYROXINE SODIUM [Concomitant]
  7. METHIMAZOLE [Concomitant]
  8. METOPROLOL /00376902/ [Concomitant]
  9. SYNTHROID [Concomitant]
  10. SSKI [Concomitant]
  11. W/ACETAMINOPHENE [Concomitant]
  12. CEPHALEXIN [Concomitant]
  13. NADOLOL [Concomitant]

REACTIONS (41)
  - DRUG INEFFECTIVE [None]
  - BLINDNESS UNILATERAL [None]
  - VIITH NERVE PARALYSIS [None]
  - NAUSEA [None]
  - PARAESTHESIA [None]
  - MIGRAINE [None]
  - MENSTRUATION IRREGULAR [None]
  - VOMITING [None]
  - PAIN [None]
  - ASTHMA [None]
  - CHEST PAIN [None]
  - INCORRECT DOSE ADMINISTERED [None]
  - MUSCULOSKELETAL PAIN [None]
  - BASEDOW'S DISEASE [None]
  - ALOPECIA [None]
  - CHRONIC SINUSITIS [None]
  - TREMOR [None]
  - PAIN IN EXTREMITY [None]
  - SINUS TACHYCARDIA [None]
  - DYSKINESIA [None]
  - AMENORRHOEA [None]
  - PREGNANCY [None]
  - DRUG EXPOSURE BEFORE PREGNANCY [None]
  - COAGULOPATHY [None]
  - POST PROCEDURAL HYPOTHYROIDISM [None]
  - TRANSIENT ISCHAEMIC ATTACK [None]
  - MUSCLE SPASMS [None]
  - APHTHOUS STOMATITIS [None]
  - FEELING JITTERY [None]
  - OVARIAN CYST [None]
  - COUGH [None]
  - DYSPHAGIA [None]
  - FATIGUE [None]
  - PHARYNGITIS [None]
  - UPPER RESPIRATORY TRACT INFECTION [None]
  - SPEECH DISORDER [None]
  - VISUAL IMPAIRMENT [None]
  - AREFLEXIA [None]
  - BALANCE DISORDER [None]
  - C-REACTIVE PROTEIN INCREASED [None]
  - WEIGHT DECREASED [None]
